FAERS Safety Report 10049442 (Version 2)
Quarter: 2014Q2

REPORT INFORMATION
  Report Type: Report from Study
  Country: US (occurrence: US)
  Receive Date: 20140401
  Receipt Date: 20140401
  Transmission Date: 20141212
  Serious: No
  Sender: FDA-Public Use
  Company Number: US-JNJFOC-20140212793

PATIENT
  Age: 59 Year
  Sex: Female

DRUGS (7)
  1. STELARA [Suspect]
     Indication: PRODUCT USED FOR UNKNOWN INDICATION
     Route: 058
     Dates: start: 20130412
  2. STELARA [Suspect]
     Indication: PRODUCT USED FOR UNKNOWN INDICATION
     Route: 058
     Dates: start: 20130313
  3. STELARA [Suspect]
     Indication: PRODUCT USED FOR UNKNOWN INDICATION
     Route: 058
     Dates: start: 20130227
  4. LISINOPRIL [Concomitant]
     Indication: BLOOD PRESSURE
     Route: 065
  5. CRESTOR [Concomitant]
     Indication: BLOOD CHOLESTEROL
     Route: 065
  6. EFFEXOR [Concomitant]
     Indication: DEPRESSION
     Route: 065
  7. BUSPAR [Concomitant]
     Indication: DEPRESSION
     Route: 065

REACTIONS (2)
  - Drug ineffective [Recovered/Resolved]
  - Pustular psoriasis [Unknown]
